FAERS Safety Report 14498471 (Version 3)
Quarter: 2020Q1

REPORT INFORMATION
  Report Type: Spontaneous
  Country: US (occurrence: US)
  Receive Date: 20180207
  Receipt Date: 20200116
  Transmission Date: 20200409
  Serious: Yes (Hospitalization, Congenital Anomaly, Other)
  Sender: FDA-Public Use
  Company Number: US-ASTRAZENECA-2018SE12698

PATIENT
  Age: 66 Year
  Sex: Female
  Weight: 68 kg

DRUGS (17)
  1. METHOTREXATE. [Suspect]
     Active Substance: METHOTREXATE
     Indication: RHEUMATOID ARTHRITIS
     Route: 065
  2. PLETAL [Concomitant]
     Active Substance: CILOSTAZOL
     Indication: ANTICOAGULANT THERAPY
  3. GABAPENTIN. [Concomitant]
     Active Substance: GABAPENTIN
     Indication: BACK PAIN
  4. INDAPAMIDE. [Concomitant]
     Active Substance: INDAPAMIDE
     Indication: DIURETIC THERAPY
  5. LISINOPRIL. [Suspect]
     Active Substance: LISINOPRIL
     Indication: BLOOD PRESSURE ABNORMAL
     Route: 048
  6. TOPROL XL [Suspect]
     Active Substance: METOPROLOL SUCCINATE
     Indication: BLOOD PRESSURE ABNORMAL
     Route: 048
  7. HUMIRA [Suspect]
     Active Substance: ADALIMUMAB
     Indication: RHEUMATOID ARTHRITIS
     Dosage: 40MG/0.8ML AT 40 MG ONCE IN TWO WEEKS
     Route: 058
     Dates: start: 201503, end: 201710
  8. PREDNISONE. [Concomitant]
     Active Substance: PREDNISONE
     Indication: INFLAMMATION
  9. FOSAMAX [Concomitant]
     Active Substance: ALENDRONATE SODIUM
     Indication: BONE DISORDER
  10. BACTRIM [Concomitant]
     Active Substance: SULFAMETHOXAZOLE\TRIMETHOPRIM
     Indication: INFECTION
  11. PRILOSEC [Suspect]
     Active Substance: OMEPRAZOLE MAGNESIUM
     Indication: ABDOMINAL DISCOMFORT
     Route: 048
  12. POTASSIUM [Concomitant]
     Active Substance: POTASSIUM
     Indication: BLOOD POTASSIUM DECREASED
  13. HUMIRA [Suspect]
     Active Substance: ADALIMUMAB
     Indication: RHEUMATOID ARTHRITIS
     Dosage: 40MG/0.8ML AT 40 MG ONCE IN TWO WEEKS
     Route: 058
     Dates: start: 201503, end: 201710
  14. MECLIZINE [Concomitant]
     Active Substance: MECLIZINE HYDROCHLORIDE
     Indication: MENIERE^S DISEASE
  15. SOTALOL. [Concomitant]
     Active Substance: SOTALOL
     Indication: SUPRAVENTRICULAR TACHYCARDIA
  16. CRESTOR [Suspect]
     Active Substance: ROSUVASTATIN CALCIUM
     Indication: BLOOD CHOLESTEROL ABNORMAL
     Route: 048
  17. PLAVIX [Concomitant]
     Active Substance: CLOPIDOGREL BISULFATE
     Indication: ANTICOAGULANT THERAPY

REACTIONS (24)
  - Carotid artery occlusion [Not Recovered/Not Resolved]
  - Joint injury [Unknown]
  - Pulmonary oedema [Unknown]
  - Hypotension [Not Recovered/Not Resolved]
  - Bursitis [Recovering/Resolving]
  - Oxygen saturation decreased [Recovered/Resolved]
  - Intervertebral disc protrusion [Recovered/Resolved]
  - Rheumatoid arthritis [Not Recovered/Not Resolved]
  - Candida infection [Unknown]
  - Musculoskeletal disorder [Unknown]
  - Pain in extremity [Unknown]
  - Fall [Recovering/Resolving]
  - Skin necrosis [Unknown]
  - Chronic obstructive pulmonary disease [Unknown]
  - Spinal cord disorder [Unknown]
  - Cataract [Unknown]
  - Trigger finger [Unknown]
  - Wound infection staphylococcal [Unknown]
  - Back pain [Unknown]
  - Arthropathy [Not Recovered/Not Resolved]
  - Spinal stenosis [Recovering/Resolving]
  - Impaired healing [Recovering/Resolving]
  - Bronchitis [Recovered/Resolved]
  - Arthralgia [Unknown]

NARRATIVE: CASE EVENT DATE: 2015
